FAERS Safety Report 22191106 (Version 1)
Quarter: 2023Q2

REPORT INFORMATION
  Report Type: Spontaneous
  Country: CN (occurrence: CN)
  Receive Date: 20230410
  Receipt Date: 20230410
  Transmission Date: 20230722
  Serious: Yes (Other)
  Sender: FDA-Public Use
  Company Number: CN-MYLANLABS-2023M1036254

PATIENT
  Age: 79 Year
  Sex: Male
  Weight: 70 kg

DRUGS (2)
  1. LYRICA [Suspect]
     Active Substance: PREGABALIN
     Indication: Post herpetic neuralgia
     Dosage: 75 MILLIGRAM, QD
     Route: 048
  2. LYRICA [Suspect]
     Active Substance: PREGABALIN
     Dosage: 75 MILLIGRAM, BID
     Route: 048
     Dates: start: 20151130, end: 20230209

REACTIONS (1)
  - Respiratory depression [Recovering/Resolving]

NARRATIVE: CASE EVENT DATE: 20230209
